FAERS Safety Report 9290579 (Version 2)
Quarter: 2013Q4

REPORT INFORMATION
  Report Type: Spontaneous
  Country: GB (occurrence: GB)
  Receive Date: 20130515
  Receipt Date: 20131106
  Transmission Date: 20140711
  Serious: Yes (Hospitalization, Other)
  Sender: FDA-Public Use
  Company Number: GB-ELI_LILLY_AND_COMPANY-GB201305002380

PATIENT
  Sex: Male

DRUGS (5)
  1. ZYPREXA VELOTAB [Suspect]
     Indication: SCHIZOPHRENIA
     Dosage: 30 MG, EACH EVENING
     Route: 048
     Dates: start: 2004
  2. ZYPREXA VELOTAB [Interacting]
     Indication: PSYCHOTIC DISORDER
     Dosage: 30 MG, EACH EVENING
     Route: 048
     Dates: start: 20130911
  3. ZYPREXA VELOTAB [Interacting]
     Dosage: 10 MG, UNKNOWN
     Route: 048
     Dates: start: 200108
  4. ZYPREXA VELOTAB [Interacting]
     Dosage: 10 MG, UNKNOWN
     Route: 048
  5. HALOPERIDOL [Interacting]
     Indication: PRODUCT USED FOR UNKNOWN INDICATION
     Dosage: UNK, UNKNOWN
     Route: 065

REACTIONS (4)
  - Schizophrenia [Not Recovered/Not Resolved]
  - Bundle branch block right [Unknown]
  - Drug interaction [Unknown]
  - Overdose [Unknown]
